FAERS Safety Report 10051168 (Version 2)
Quarter: 2014Q2

REPORT INFORMATION
  Report Type: Spontaneous
  Country: US (occurrence: US)
  Receive Date: 20140401
  Receipt Date: 20140401
  Transmission Date: 20141212
  Serious: Yes (Other)
  Sender: FDA-Public Use
  Company Number: US-GILEAD-2014-0095422

PATIENT
  Sex: Female

DRUGS (3)
  1. RANEXA [Suspect]
     Indication: PRODUCT USED FOR UNKNOWN INDICATION
     Dosage: 1000 MG, BID
     Route: 048
     Dates: start: 20140206, end: 20140313
  2. RANEXA [Suspect]
     Dosage: 500 MG, BID
     Route: 048
     Dates: start: 20140206, end: 20140313
  3. PRIMIDONE [Concomitant]

REACTIONS (1)
  - Angina pectoris [Unknown]
